FAERS Safety Report 6711968-2 (Version None)
Quarter: 2010Q2

REPORT INFORMATION
  Report Type: 
  Country: None (occurrence: None)
  Receive Date: 20100505
  Receipt Date: 20100426
  Transmission Date: 20101027
  Serious: Yes (Hospitalization)
  Sender: FDA-Public Use
  Company Number: DE-PFIZER INC-2010052051

PATIENT
  Age: 71 Year
  Sex: Female
  Weight: 85 kg

DRUGS (12)
  1. AMLODIPINE BESYLATE [Suspect]
     Indication: HYPERTENSION
     Dosage: 10 MG, 1X/DAY
     Route: 048
     Dates: start: 20000101
  2. BISOPROLOL [Interacting]
     Indication: HYPERTENSION
     Dosage: 20 MG, DAY
     Route: 048
     Dates: start: 20000101, end: 20080801
  3. BISOPROLOL [Interacting]
     Dosage: 10 MG, 1X/DAY
     Route: 048
     Dates: start: 20080801
  4. SIMVASTATIN [Concomitant]
     Indication: HYPERLIPIDAEMIA
     Dosage: 40 MG, 1X/DAY
     Route: 048
     Dates: start: 20080830
  5. DOXEPIN HCL [Concomitant]
     Indication: DEPRESSION
     Dosage: 20 MG, 2X/DAY
     Route: 048
     Dates: start: 20080901
  6. MANINIL ^BERLIN-CHEMIE^ [Concomitant]
     Indication: TYPE 2 DIABETES MELLITUS
     Dosage: 1 MG, 2X/DAY
     Route: 048
     Dates: start: 19920101
  7. RAMIPRIL [Concomitant]
     Indication: HYPERTENSION
     Dosage: 2.5 MG, 2X/DAY
     Route: 048
     Dates: start: 20080901
  8. RAMIPRIL [Concomitant]
     Dosage: 2.5 MG, 1X/DAY
     Route: 048
     Dates: start: 20081004
  9. HYDROCHLOROTHIAZIDE [Concomitant]
     Indication: HYPERTENSION
     Dosage: 25 MG, 1X/DAY
     Route: 048
     Dates: start: 20000101
  10. PANTOZOL [Concomitant]
     Indication: DUODENAL ULCER
     Dosage: 40 MG, 1X/DAY
     Route: 048
     Dates: start: 20080922
  11. PLAVIX [Concomitant]
     Indication: MYOCARDIAL INFARCTION
     Dosage: 75 MG, 1X/DAY
     Route: 048
     Dates: start: 20080922
  12. ASPIRIN [Concomitant]
     Indication: MYOCARDIAL INFARCTION
     Dosage: 100 MG, 1X/DAY
     Route: 048
     Dates: start: 20080922

REACTIONS (2)
  - BRADYCARDIA [None]
  - DRUG INTERACTION [None]
